FAERS Safety Report 14014507 (Version 1)
Quarter: 2017Q3

REPORT INFORMATION
  Report Type: Spontaneous
  Country: US (occurrence: None)
  Receive Date: 20170926
  Receipt Date: 20170926
  Transmission Date: 20171128
  Serious: Yes (Other)
  Sender: FDA-Public Use
  Company Number: None

PATIENT
  Sex: Female
  Weight: 57.61 kg

DRUGS (3)
  1. PROLIA [Suspect]
     Active Substance: DENOSUMAB
     Indication: OSTEOPOROSIS
     Dosage: 60MG Q6MO SUBQ
     Route: 058
     Dates: start: 201312
  2. PROLIA [Suspect]
     Active Substance: DENOSUMAB
     Indication: DRUG THERAPY
     Dosage: 60MG Q6MO SUBQ
     Route: 058
     Dates: start: 201312
  3. PROLIA [Suspect]
     Active Substance: DENOSUMAB
     Indication: PROPHYLAXIS
     Dosage: 60MG Q6MO SUBQ
     Route: 058
     Dates: start: 201312

REACTIONS (2)
  - Fractured coccyx [None]
  - Treatment noncompliance [None]
